FAERS Safety Report 23477605 (Version 1)
Quarter: 2024Q1

REPORT INFORMATION
  Report Type: Report from Study
  Country: US (occurrence: US)
  Receive Date: 20240204
  Receipt Date: 20240204
  Transmission Date: 20240409
  Serious: No
  Sender: FDA-Public Use
  Company Number: US-EXELIXIS-CABO-23067253

PATIENT
  Sex: Female

DRUGS (3)
  1. CABOMETYX [Suspect]
     Active Substance: CABOZANTINIB S-MALATE
     Indication: Renal cancer
     Dosage: 60 MG (20 MG X 3), QD
     Route: 048
  2. CABOMETYX [Suspect]
     Active Substance: CABOZANTINIB S-MALATE
     Dosage: 60 MG, QD (5 WEEKS ON FOLLOWED BY 1 WEEK OFF))
     Route: 048
  3. MAGNESIUM [Suspect]
     Active Substance: MAGNESIUM
     Indication: Product used for unknown indication
     Dosage: UNK

REACTIONS (14)
  - Flatulence [Not Recovered/Not Resolved]
  - Blister [Unknown]
  - Peripheral swelling [Unknown]
  - Glossodynia [Unknown]
  - Taste disorder [Unknown]
  - Fatigue [Unknown]
  - Stomatitis [Unknown]
  - Nausea [Unknown]
  - Vomiting [Unknown]
  - Diarrhoea [Recovered/Resolved]
  - Influenza [Unknown]
  - Adverse event [Unknown]
  - Inappropriate schedule of product administration [Unknown]
  - Product prescribing issue [Unknown]
